FAERS Safety Report 5422131-X (Version None)
Quarter: 2007Q3

REPORT INFORMATION
  Report Type: 
  Country: None (occurrence: None)
  Receive Date: 20070821
  Receipt Date: 20070821
  Transmission Date: 20080115
  Serious: Yes (Hospitalization, Other)
  Sender: FDA-Public Use
  Company Number: None

PATIENT
  Age: 75 Year
  Sex: Female

DRUGS (3)
  1. PHOSPHOSODA FLAVOR NOT SPECIFIED [Suspect]
     Dosage: 120 ML; PO
     Route: 048
  2. HYDROCHLOROTHIAZIDE [Concomitant]
  3. VALSARTAN [Concomitant]

REACTIONS (16)
  - ASTHENIA [None]
  - BLOOD CALCIUM DECREASED [None]
  - BLOOD CHLORIDE DECREASED [None]
  - BLOOD CREATININE INCREASED [None]
  - BLOOD PHOSPHORUS INCREASED [None]
  - BLOOD SODIUM DECREASED [None]
  - BLOOD UREA INCREASED [None]
  - CALCIUM IONISED DECREASED [None]
  - DIARRHOEA [None]
  - DRY MOUTH [None]
  - HAEMODIALYSIS [None]
  - MUCOUS MEMBRANE DISORDER [None]
  - ORAL INTAKE REDUCED [None]
  - PROTEINURIA [None]
  - RENAL DISORDER [None]
  - URINARY CASTS [None]
